FAERS Safety Report 7275458-3 (Version None)
Quarter: 2011Q1

REPORT INFORMATION
  Report Type: 
  Country: None (occurrence: None)
  Receive Date: 20110126
  Receipt Date: 20110120
  Transmission Date: 20110831
  Serious: Yes (Other)
  Sender: FDA-Public Use
  Company Number: 2011SP002828

PATIENT
  Age: 41 Year
  Sex: Female

DRUGS (1)
  1. CERAZETTE (DESOGESTREL / 00754001/ ) [Suspect]
     Indication: CONTRACEPTION

REACTIONS (2)
  - BREAST TENDERNESS [None]
  - OVARIAN CYST [None]
